FAERS Safety Report 18459925 (Version 5)
Quarter: 2021Q3

REPORT INFORMATION
  Report Type: Report from Study
  Country: CA (occurrence: CA)
  Receive Date: 20201104
  Receipt Date: 20210830
  Transmission Date: 20211014
  Serious: Yes (Hospitalization, Other)
  Sender: FDA-Public Use
  Company Number: CA-SAMSUNG BIOEPIS-SB-2020-27872

PATIENT
  Age: 62 Year
  Sex: Female
  Weight: 77.6 kg

DRUGS (5)
  1. CHOLESTYRAMINE. [Concomitant]
     Active Substance: CHOLESTYRAMINE
     Indication: PRODUCT USED FOR UNKNOWN INDICATION
     Dosage: ONE PACKAGE PER DAY PRIOR TO BED
     Route: 065
  2. RENFLEXIS [Suspect]
     Active Substance: INFLIXIMAB-ABDA
     Indication: CROHN^S DISEASE
     Route: 042
     Dates: start: 20200317
  3. ACLASTA [Concomitant]
     Active Substance: ZOLEDRONIC ACID
     Indication: PRODUCT USED FOR UNKNOWN INDICATION
     Dosage: UNKNOWN
     Route: 065
  4. NORVASC [Concomitant]
     Active Substance: AMLODIPINE BESYLATE
     Indication: PRODUCT USED FOR UNKNOWN INDICATION
     Dosage: UNKNOWN
     Route: 065
  5. COVERSYL [Concomitant]
     Active Substance: PERINDOPRIL
     Indication: PRODUCT USED FOR UNKNOWN INDICATION
     Dosage: UNKNOWN
     Route: 065

REACTIONS (17)
  - Frustration tolerance decreased [Not Recovered/Not Resolved]
  - Product substitution issue [Unknown]
  - Loss of personal independence in daily activities [Unknown]
  - Drug ineffective [Unknown]
  - Helicobacter infection [Recovered/Resolved]
  - Vomiting [Recovered/Resolved]
  - Eating disorder [Not Recovered/Not Resolved]
  - Depressed mood [Not Recovered/Not Resolved]
  - Stress [Unknown]
  - Hypertension [Recovered/Resolved]
  - Crohn^s disease [Recovered/Resolved]
  - Quality of life decreased [Unknown]
  - Blood pressure abnormal [Unknown]
  - Immunodeficiency [Unknown]
  - Headache [Recovered/Resolved]
  - Skin cancer [Unknown]
  - Fear of disease [Unknown]

NARRATIVE: CASE EVENT DATE: 20201027
